FAERS Safety Report 9880369 (Version 2)
Quarter: 2014Q1

REPORT INFORMATION
  Report Type: Spontaneous
  Country: US (occurrence: US)
  Receive Date: 20140207
  Receipt Date: 20140216
  Transmission Date: 20141002
  Serious: No
  Sender: FDA-Public Use
  Company Number: US-009507513-1402USA002980

PATIENT
  Sex: 0

DRUGS (3)
  1. INTEGRILIN [Suspect]
     Dosage: 2 MICROGRAM PER KILOGRAM/MIN
  2. ASPIRIN [Concomitant]
     Route: 048
  3. HEPARIN [Concomitant]
     Route: 042

REACTIONS (1)
  - Gastrointestinal haemorrhage [Unknown]
